FAERS Safety Report 7545096-3 (Version None)
Quarter: 2011Q2

REPORT INFORMATION
  Report Type: 
  Country: None (occurrence: None)
  Receive Date: 20110606
  Receipt Date: 20110523
  Transmission Date: 20111010
  Serious: Yes (Hospitalization, Other)
  Sender: FDA-Public Use
  Company Number: 2011050207

PATIENT
  Age: 52 Year
  Sex: Female
  Weight: 61.2356 kg

DRUGS (15)
  1. SOMA [Suspect]
     Dates: end: 20110417
  2. LYRICA [Concomitant]
  3. TRAZODONE HCL [Suspect]
     Indication: DEPRESSION
     Dosage: (50 MG, QHS), ORAL
     Route: 048
     Dates: start: 20110329, end: 20110417
  4. TRAZODONE HCL [Suspect]
     Indication: INSOMNIA
     Dosage: (50 MG, QHS), ORAL
     Route: 048
     Dates: start: 20110329, end: 20110417
  5. KLONOPIN [Suspect]
     Indication: DEPRESSION
     Dosage: (2 MG, QHS EVERY NIGHT), ORAL
     Route: 048
     Dates: start: 20060220
  6. KLONOPIN [Suspect]
     Indication: INSOMNIA
     Dosage: (2 MG, QHS EVERY NIGHT), ORAL
     Route: 048
     Dates: start: 20060220
  7. ZOFRAN [Concomitant]
  8. PREVACID [Concomitant]
  9. OXYCONTIN [Suspect]
     Indication: PAIN
     Dosage: 60 MG (30 MG, 1 IN 12 HR), ORAL
     Route: 048
     Dates: start: 20090624
  10. UNKNOWN STUDY MEDICATION [Suspect]
     Indication: NON-SMALL CELL LUNG CANCER
     Dosage: 500 MG (250 MG, 2 IN 1 D), ORAL
     Route: 048
     Dates: start: 20110215, end: 20110331
  11. SEROQUEL [Suspect]
     Indication: DEPRESSION
     Dosage: (200 MG, QHS), ORAL
     Route: 048
     Dates: start: 20060201
  12. SEROQUEL [Suspect]
     Indication: INSOMNIA
     Dosage: (200 MG, QHS), ORAL
     Route: 048
     Dates: start: 20060201
  13. OXYCODONE HCL [Concomitant]
  14. COLACE (DOCUSATE SODIUM) [Concomitant]
  15. NIFEREX FORTE (CYANOCOBALAMIN, FOLIC ACID, CALCIUM ASCORBATE, POLYSACC [Concomitant]

REACTIONS (11)
  - LOSS OF CONSCIOUSNESS [None]
  - BLOOD CREATINE PHOSPHOKINASE INCREASED [None]
  - SINUS TACHYCARDIA [None]
  - INSOMNIA [None]
  - ANAEMIA [None]
  - ILEUS [None]
  - BLOOD CALCIUM DECREASED [None]
  - PAIN [None]
  - OVERDOSE [None]
  - PNEUMONIA [None]
  - DEPRESSION [None]
